FAERS Safety Report 4921201-X (Version None)
Quarter: 2006Q1

REPORT INFORMATION
  Report Type: 
  Country: None (occurrence: None)
  Receive Date: 20060125
  Receipt Date: 20050427
  Transmission Date: 20060701
  Serious: Yes (Hospitalization)
  Sender: FDA-Public Use
  Company Number: HQWYE465202MAY05

PATIENT
  Age: 88 Year
  Sex: Female
  Weight: 49.9 kg

DRUGS (9)
  1. CORDARONE [Suspect]
     Indication: ATRIAL FIBRILLATION
     Dosage: 200 MG, ORAL
     Route: 048
     Dates: start: 20020101
  2. CORDARONE [Suspect]
     Indication: ATRIAL FLUTTER
     Dosage: 200 MG, ORAL
     Route: 048
     Dates: start: 20020101
  3. COREG [Concomitant]
  4. ECOTRIN (ACETYLSALICYLIC ACID) [Concomitant]
  5. LASIX [Concomitant]
  6. POTASSIUM CHLORIDE [Concomitant]
  7. RAMIPRIL [Concomitant]
  8. CELEXA [Concomitant]
  9. IMDUR [Concomitant]

REACTIONS (1)
  - PULMONARY FIBROSIS [None]
